FAERS Safety Report 9772984 (Version 1)
Quarter: 2013Q4

REPORT INFORMATION
  Report Type: Spontaneous
  Country: GB (occurrence: GB)
  Receive Date: 20131219
  Receipt Date: 20131219
  Transmission Date: 20140711
  Serious: Yes (Other)
  Sender: FDA-Public Use
  Company Number: GB-SA-2013SA130200

PATIENT
  Sex: 0

DRUGS (3)
  1. ALEMTUZUMAB [Suspect]
     Indication: IMMUNOSUPPRESSION
     Route: 042
  2. MYCOPHENOLATE MOFETIL [Concomitant]
  3. TACROLIMUS [Concomitant]

REACTIONS (1)
  - Cytokine release syndrome [Unknown]
